FAERS Safety Report 19715660 (Version 1)
Quarter: 2021Q3

REPORT INFORMATION
  Report Type: Report from Study
  Country: US (occurrence: US)
  Receive Date: 20210818
  Receipt Date: 20210818
  Transmission Date: 20211014
  Serious: No
  Sender: FDA-Public Use
  Company Number: US-IPSEN BIOPHARMACEUTICALS, INC.-2021-19793

PATIENT
  Sex: Male

DRUGS (3)
  1. SOMATULINE DEPOT [Suspect]
     Active Substance: LANREOTIDE ACETATE
     Indication: OFF LABEL USE
  2. SOMATULINE DEPOT [Suspect]
     Active Substance: LANREOTIDE ACETATE
     Indication: PITUITARY TUMOUR
     Dosage: 90 MG (0.3 ML)
     Route: 058
  3. SOMAVERT [Suspect]
     Active Substance: PEGVISOMANT
     Indication: PRODUCT USED FOR UNKNOWN INDICATION
     Route: 065

REACTIONS (5)
  - Constipation [Recovered/Resolved]
  - Faeces soft [Not Recovered/Not Resolved]
  - Off label use [Unknown]
  - Diarrhoea [Recovered/Resolved]
  - Memory impairment [Unknown]
